FAERS Safety Report 5529216-8 (Version None)
Quarter: 2007Q4

REPORT INFORMATION
  Report Type: 
  Country: None (occurrence: None)
  Receive Date: 20071129
  Receipt Date: 20070628
  Transmission Date: 20080405
  Serious: No
  Sender: FDA-Public Use
  Company Number: A0660716A

PATIENT
  Sex: Female

DRUGS (1)
  1. BUPROPION HYDROCHLORIDE [Suspect]
     Indication: MARITAL PROBLEM
     Dosage: 100MG UNKNOWN
     Route: 048

REACTIONS (2)
  - DRUG ADMINISTRATION ERROR [None]
  - MALAISE [None]
